FAERS Safety Report 4663647-3 (Version None)
Quarter: 2005Q2

REPORT INFORMATION
  Report Type: 
  Country: None (occurrence: None)
  Receive Date: 20050517
  Receipt Date: 20041018
  Transmission Date: 20051028
  Serious: Yes (Hospitalization)
  Sender: FDA-Public Use
  Company Number: US-MERCK-0411USA03607

PATIENT
  Age: 68 Year
  Sex: Female

DRUGS (22)
  1. VIOXX [Suspect]
     Indication: ARTHRITIS
     Route: 048
     Dates: start: 20021021, end: 20021202
  2. VIOXX [Suspect]
     Route: 048
     Dates: start: 20040809
  3. VIOXX [Suspect]
     Route: 048
     Dates: start: 20040809, end: 20040901
  4. VIOXX [Suspect]
     Indication: PAIN
     Route: 048
     Dates: start: 20021021, end: 20021202
  5. VIOXX [Suspect]
     Route: 048
     Dates: start: 20040809
  6. VIOXX [Suspect]
     Route: 048
     Dates: start: 20040809, end: 20040901
  7. K-DUR 10 [Concomitant]
     Route: 048
  8. CARDURA [Concomitant]
     Route: 048
  9. DIAZEPAM [Concomitant]
     Route: 048
  10. MAGNESIUM SULFATE [Concomitant]
     Route: 048
  11. CARDIZEM [Concomitant]
     Route: 048
  12. NITROGLYCERIN [Concomitant]
     Route: 061
  13. FIORINAL-C 14 [Concomitant]
     Route: 048
  14. MAXZIDE [Concomitant]
     Route: 048
  15. BLEPHAMIDE [Concomitant]
     Route: 047
  16. GUAIFENESIN DM [Concomitant]
     Route: 048
  17. PRILOSEC [Concomitant]
     Route: 048
  18. VITAMINS (UNSPECIFIED) [Concomitant]
     Route: 048
  19. FERROUS SULFATE [Concomitant]
     Route: 065
  20. ACTONEL [Concomitant]
     Route: 048
  21. CALCIUM (UNSPECIFIED) [Concomitant]
     Route: 048
  22. ANUSOL-HC 25 MG SUPPOSITORIES [Concomitant]
     Route: 054

REACTIONS (9)
  - ABDOMINAL PAIN [None]
  - ABDOMINAL TENDERNESS [None]
  - ANAEMIA [None]
  - GENERAL PHYSICAL HEALTH DETERIORATION [None]
  - NO THERAPEUTIC RESPONSE [None]
  - PAIN [None]
  - PAIN IN EXTREMITY [None]
  - PERNICIOUS ANAEMIA [None]
  - WHEELCHAIR USER [None]
